FAERS Safety Report 25425945 (Version 1)
Quarter: 2025Q2

REPORT INFORMATION
  Report Type: Spontaneous
  Country: FR (occurrence: FR)
  Receive Date: 20250612
  Receipt Date: 20250612
  Transmission Date: 20250717
  Serious: Yes (Other)
  Sender: EMD SERONO INC
  Company Number: FR-Merck Healthcare KGaA-2025028387

PATIENT

DRUGS (1)
  1. LEVOTHYROXINE [Suspect]
     Active Substance: LEVOTHYROXINE
     Indication: Product used for unknown indication
     Dosage: AT A DOSE OF 75 AND 88 (UNIT UNSPECIFIED) ALTERNATING SCHEDULE

REACTIONS (4)
  - Lipoedema [Unknown]
  - Hypothyroidism [Unknown]
  - Somnolence [Unknown]
  - Feeling abnormal [Unknown]
